FAERS Safety Report 16003640 (Version 1)
Quarter: 2019Q1

REPORT INFORMATION
  Report Type: Report from Study
  Country: JP (occurrence: JP)
  Receive Date: 20190226
  Receipt Date: 20190226
  Transmission Date: 20190418
  Serious: Yes (Other)
  Sender: FDA-Public Use
  Company Number: JP-ALEXION PHARMACEUTICALS INC.-A201902456

PATIENT

DRUGS (3)
  1. STRENSIQ [Suspect]
     Active Substance: ASFOTASE ALFA
     Dosage: 2 MG/KG, TIW
     Route: 058
     Dates: start: 20170116
  2. STRENSIQ [Suspect]
     Active Substance: ASFOTASE ALFA
     Indication: HYPOPHOSPHATASIA
     Dosage: 1 MG/KG, SIX TIMES/WEEK
     Route: 058
     Dates: start: 20170113, end: 20170113
  3. STRENSIQ [Suspect]
     Active Substance: ASFOTASE ALFA
     Dosage: 12 MG, DAILY
     Route: 058

REACTIONS (2)
  - Craniosynostosis [Unknown]
  - Growth retardation [Unknown]
